FAERS Safety Report 13158602 (Version 2)
Quarter: 2017Q1

REPORT INFORMATION
  Report Type: Report from Study
  Country: KR (occurrence: KR)
  Receive Date: 20170127
  Receipt Date: 20170203
  Transmission Date: 20170428
  Serious: Yes (Hospitalization)
  Sender: FDA-Public Use
  Company Number: KR-PFIZER INC-2017021917

PATIENT
  Age: 43 Year
  Sex: Male
  Weight: 90 kg

DRUGS (6)
  1. CRIZOTINIB [Suspect]
     Active Substance: CRIZOTINIB
     Indication: NON-SMALL CELL LUNG CANCER
     Dosage: 250 MG, 2X/DAY
     Route: 048
     Dates: start: 20161221, end: 20170110
  2. CODEINE [Concomitant]
     Active Substance: CODEINE
     Indication: COUGH
     Dosage: 60 MG, AS NEEDED
     Route: 048
     Dates: start: 20170104
  3. DOMPERIDONE [Concomitant]
     Active Substance: DOMPERIDONE
     Indication: NAUSEA
     Dosage: 10 MG, AS NEEDED
     Route: 048
     Dates: start: 20170104
  4. MSB0010718C [Suspect]
     Active Substance: AVELUMAB
     Indication: NON-SMALL CELL LUNG CANCER
     Dosage: 891 MG, CYCLIC (EVERY 2 WEEKS)
     Route: 042
     Dates: start: 20161221, end: 20170104
  5. CIA [Concomitant]
     Indication: FLANK PAIN
     Dosage: 2 DF, AS NEEDED
     Route: 048
     Dates: start: 20150911
  6. ACETAMINOPHEN. [Concomitant]
     Active Substance: ACETAMINOPHEN
     Indication: FLANK PAIN
     Dosage: 650 MG, AS NEEDED
     Route: 048
     Dates: start: 20161129

REACTIONS (1)
  - Hepatitis [Not Recovered/Not Resolved]

NARRATIVE: CASE EVENT DATE: 20170116
